FAERS Safety Report 10107183 (Version 2)
Quarter: 2014Q3

REPORT INFORMATION
  Report Type: Other
  Country: None (occurrence: US)
  Receive Date: 20140424
  Receipt Date: 20140728
  Transmission Date: 20150326
  Serious: Yes (Hospitalization, Other)
  Sender: FDA-Public Use
  Company Number: US-GSKPPD-2014GSK001600

PATIENT
  Age: 73 Year
  Sex: Male

DRUGS (7)
  1. MAXZIDE [Concomitant]
     Active Substance: HYDROCHLOROTHIAZIDE\TRIAMTERENE
     Dosage: 25/37.5 QD
     Route: 048
  2. AMIODARON [Concomitant]
     Active Substance: AMIODARONE
     Dosage: QD
     Route: 048
  3. COUMADIN [Concomitant]
     Active Substance: WARFARIN SODIUM
     Dosage: QHS
     Route: 048
  4. LISINOPRIL. [Concomitant]
     Active Substance: LISINOPRIL
     Dosage: QD
     Route: 048
  5. AVANDIA [Suspect]
     Active Substance: ROSIGLITAZONE MALEATE
     Indication: DIABETES MELLITUS
     Dosage: DATE OF AVANDIA USE COULD NOT BE CONFIRMED IN RECORDS REVIEWED.
     Route: 048
  6. COREG [Concomitant]
     Active Substance: CARVEDILOL
     Dosage: TWICE DAILY
     Route: 048
  7. ZOCOR [Concomitant]
     Active Substance: SIMVASTATIN
     Dosage: QHS
     Route: 048

REACTIONS (1)
  - Coronary artery bypass [Recovered/Resolved]

NARRATIVE: CASE EVENT DATE: 20060702
